FAERS Safety Report 5369537-5 (Version None)
Quarter: 2007Q2

REPORT INFORMATION
  Report Type: 
  Country: None (occurrence: None)
  Receive Date: 20070625
  Receipt Date: 20070612
  Transmission Date: 20071010
  Serious: Yes (Hospitalization)
  Sender: FDA-Public Use
  Company Number: B0475419A

PATIENT
  Age: 64 Year
  Sex: Female

DRUGS (2)
  1. AVANDAMET [Suspect]
     Route: 065
     Dates: start: 20061001, end: 20070501
  2. RIMONABANT [Suspect]
     Route: 065
     Dates: start: 20070501

REACTIONS (2)
  - GASTROINTESTINAL PAIN [None]
  - MYOCARDIAL INFARCTION [None]
